FAERS Safety Report 22604075 (Version 16)
Quarter: 2023Q4

REPORT INFORMATION
  Report Type: Report from Study
  Country: CL (occurrence: CL)
  Receive Date: 20230615
  Receipt Date: 20231129
  Transmission Date: 20240109
  Serious: Yes (Hospitalization)
  Sender: FDA-Public Use
  Company Number: CL-002147023-NVSC2023CL127190

PATIENT
  Age: 49 Year
  Sex: Female

DRUGS (2)
  1. KISQALI [Suspect]
     Active Substance: RIBOCICLIB
     Indication: Breast cancer
     Dosage: 200 MG, TID (600 MG)
     Route: 048
     Dates: start: 20230522
  2. KISQALI [Suspect]
     Active Substance: RIBOCICLIB
     Dosage: 3 DOSAGE FORM, Q8H, (31 JUL, EACH TABLET: 08:00, 16:00 AND 00:00 HOURS)
     Route: 065

REACTIONS (21)
  - Spinal fracture [Unknown]
  - Spinal pain [Unknown]
  - Bone pain [Unknown]
  - Bone disorder [Unknown]
  - Spinal deformity [Unknown]
  - Mouth injury [Unknown]
  - Retching [Unknown]
  - Feeding disorder [Unknown]
  - General physical health deterioration [Unknown]
  - Musculoskeletal chest pain [Unknown]
  - Throat clearing [Unknown]
  - Visual impairment [Unknown]
  - Nausea [Unknown]
  - Vomiting [Unknown]
  - Fatigue [Unknown]
  - Alopecia [Unknown]
  - Myalgia [Unknown]
  - Dyspnoea [Unknown]
  - White blood cell count decreased [Unknown]
  - Decreased immune responsiveness [Unknown]
  - Inappropriate schedule of product administration [Unknown]
